FAERS Safety Report 7512915-6 (Version None)
Quarter: 2011Q2

REPORT INFORMATION
  Report Type: 
  Country: None (occurrence: None)
  Receive Date: 20110531
  Receipt Date: 20101119
  Transmission Date: 20111010
  Serious: No
  Sender: FDA-Public Use
  Company Number: US-NOVEN-ALL1-2010-06111

PATIENT
  Sex: Male
  Weight: 68.027 kg

DRUGS (4)
  1. DAYTRANA [Suspect]
     Dosage: 20 MG, 1X/DAY:QD
     Route: 062
     Dates: start: 20100801, end: 20100901
  2. DAYTRANA [Suspect]
     Dosage: 30 MG, 1X/DAY:QD
     Route: 062
     Dates: start: 20100901
  3. ALLERGY  MEDICATION [Concomitant]
     Dosage: UNK, UNKNOWN
     Route: 048
  4. VITAMIN C                          /00008001/ [Concomitant]
     Dosage: UNK
     Route: 048

REACTIONS (4)
  - INSOMNIA [None]
  - WRONG TECHNIQUE IN DRUG USAGE PROCESS [None]
  - DRUG ADMINISTERED AT INAPPROPRIATE SITE [None]
  - PRODUCT ADHESION ISSUE [None]
